FAERS Safety Report 6963164-1 (Version None)
Quarter: 2010Q3

REPORT INFORMATION
  Report Type: 
  Country: None (occurrence: None)
  Receive Date: 20100823
  Receipt Date: 20100520
  Transmission Date: 20110219
  Serious: No
  Sender: FDA-Public Use
  Company Number: 012425

PATIENT
  Sex: Female
  Weight: 113.4 kg

DRUGS (3)
  1. CIMZIA [Suspect]
     Indication: CROHN'S DISEASE
     Dosage: (SUBCUTANEOUS)
     Route: 058
     Dates: start: 20090401
  2. MEDROXYPROGESTERONE ACETATE [Concomitant]
  3. ENTOCORT EC [Concomitant]

REACTIONS (3)
  - FREQUENT BOWEL MOVEMENTS [None]
  - INJECTION SITE RASH [None]
  - INSOMNIA [None]
